FAERS Safety Report 6713413-X (Version None)
Quarter: 2010Q2

REPORT INFORMATION
  Report Type: 
  Country: None (occurrence: None)
  Receive Date: 20100506
  Receipt Date: 20100414
  Transmission Date: 20101027
  Serious: Yes (Hospitalization)
  Sender: FDA-Public Use
  Company Number: US-ROCHE-700724

PATIENT
  Sex: Female

DRUGS (19)
  1. XELODA [Suspect]
     Dosage: THERAPY HOLD
     Route: 048
  2. TYKERB [Concomitant]
     Dosage: THERAPY HOLD
     Route: 048
  3. AMOXICILLIN [Concomitant]
     Dosage: FREQUENCY: EVERY 12 HOUR
     Route: 048
  4. LACTINEX [Concomitant]
     Route: 048
  5. MULTI-VITAMIN [Concomitant]
     Route: 048
  6. IRON SULPHATE [Concomitant]
     Dosage: WITH MEALS
     Route: 048
  7. CALCIUM/VITAMIN D [Concomitant]
     Dosage: WITH MEALS
     Route: 048
  8. PRO-STAT [Concomitant]
     Dosage: WITH MEALS
     Route: 048
  9. TYLENOL-500 [Concomitant]
     Dosage: DRUG REPORTED AS OVER THE COUNTER TYLENOL, FREQUENCY: EVERY 6 HOUR AS REQUIRED (PRN) MILD PAIN,
     Route: 048
  10. ZOFRAN [Concomitant]
     Dosage: FREQUENCY: EVERY 6 HOUR PRN NAUSEA AND VOMITING
     Route: 048
  11. PROTONIX [Concomitant]
     Route: 048
  12. PERCOCET [Concomitant]
     Dosage: DOSE: 5/325 MG, FREQUENCY: EVERY 6 HOUR PRN MODERATE TO SEVERE PAIN
     Route: 048
  13. FOSAMAX [Concomitant]
     Dosage: ON THURSDAY
     Route: 048
  14. NAPROSYN [Concomitant]
     Dosage: FREQUENCY: EVERY DAY AS PRN
     Route: 048
  15. PRILOSEC [Concomitant]
     Dosage: FREQUENCY: EVERY DAY
     Route: 048
  16. LABETALOL HCL [Concomitant]
     Route: 048
  17. LOTREL [Concomitant]
     Dosage: DOSE: 2.5/10 MG, EVERY DAY
     Route: 048
  18. SUDAFED 12 HOUR [Concomitant]
  19. AMBIEN [Concomitant]
     Dosage: FREQUENCY: AT NIGHT (QHS)
     Route: 048

REACTIONS (8)
  - ANAEMIA [None]
  - BLOOD THYROID STIMULATING HORMONE ABNORMAL [None]
  - CELLULITIS [None]
  - HYPOALBUMINAEMIA [None]
  - HYPOKALAEMIA [None]
  - HYPONATRAEMIA [None]
  - MUSCULAR WEAKNESS [None]
  - STREPTOCOCCAL BACTERAEMIA [None]
